FAERS Safety Report 24290728 (Version 2)
Quarter: 2024Q3

REPORT INFORMATION
  Report Type: Spontaneous
  Country: US (occurrence: US)
  Receive Date: 20240906
  Receipt Date: 20240917
  Transmission Date: 20241017
  Serious: Yes (Other)
  Sender: TERSERA THERAPEUTICS
  Company Number: US-TERSERA THERAPEUTICS LLC-2024TRS004506

PATIENT

DRUGS (2)
  1. PRIALT [Suspect]
     Active Substance: ZICONOTIDE ACETATE
     Indication: Cancer pain
     Dosage: 3.481 MCG
     Route: 037
  2. MORPHINE [Suspect]
     Active Substance: MORPHINE
     Indication: Cancer pain
     Dosage: 11.605 MILLIGRAM
     Route: 037

REACTIONS (5)
  - Malignant neoplasm progression [Unknown]
  - Neoplasm malignant [Unknown]
  - Product use issue [Unknown]
  - Off label use [Unknown]
  - Device malfunction [Unknown]
